FAERS Safety Report 7911907-2 (Version None)
Quarter: 2011Q4

REPORT INFORMATION
  Report Type: 
  Country: None (occurrence: None)
  Receive Date: 20111114
  Receipt Date: 20111019
  Transmission Date: 20120403
  Serious: Yes (Death)
  Sender: FDA-Public Use
  Company Number: JP-ROCHE-1010570

PATIENT
  Sex: Male

DRUGS (3)
  1. REMERON [Suspect]
     Indication: DEPRESSION
     Route: 048
     Dates: start: 20110602, end: 20110622
  2. DICLOFENAC SODIUM [Suspect]
     Indication: PYREXIA
     Route: 054
     Dates: start: 20110620, end: 20110629
  3. NAPROXEN [Suspect]
     Indication: PYREXIA
     Route: 048
     Dates: start: 20110616, end: 20110629

REACTIONS (1)
  - MULTI-ORGAN FAILURE [None]
